FAERS Safety Report 9175636 (Version 4)
Quarter: 2014Q4

REPORT INFORMATION
  Report Type: Spontaneous
  Country: US (occurrence: US)
  Receive Date: 20130320
  Receipt Date: 20141117
  Transmission Date: 20150529
  Serious: Yes (Hospitalization, Other)
  Sender: FDA-Public Use
  Company Number: US-009507513-1303USA009163

PATIENT
  Sex: Female
  Weight: 78.91 kg

DRUGS (5)
  1. FOSAMAX PLUS D [Suspect]
     Active Substance: ALENDRONATE SODIUM\CHOLECALCIFEROL
     Dosage: 70MG/2800 IU
     Route: 048
     Dates: start: 20081028, end: 20110301
  2. FOSAMAX [Suspect]
     Active Substance: ALENDRONATE SODIUM
     Indication: OSTEOPENIA
     Dosage: 10 MG, UNK
     Route: 048
     Dates: start: 1997, end: 200010
  3. FOSAMAX PLUS D [Suspect]
     Active Substance: ALENDRONATE SODIUM\CHOLECALCIFEROL
     Indication: OSTEOPENIA
     Dosage: 70MG/2800 IU, UNK
     Route: 048
     Dates: start: 20050724, end: 20080730
  4. FOSAMAX [Suspect]
     Active Substance: ALENDRONATE SODIUM
     Dosage: 70 MG, UNK
     Route: 048
     Dates: start: 200010, end: 20050724
  5. ALENDRONATE SODIUM. [Suspect]
     Active Substance: ALENDRONATE SODIUM
     Indication: OSTEOPENIA
     Dosage: 70 MG, UNK
     Dates: start: 20080730, end: 20081028

REACTIONS (14)
  - Femur fracture [Recovering/Resolving]
  - Open reduction of fracture [Unknown]
  - Transfusion [Unknown]
  - Back pain [Unknown]
  - Patella fracture [Unknown]
  - Joint dislocation [Recovering/Resolving]
  - Joint dislocation reduction [Unknown]
  - Hypertension [Unknown]
  - Hypercholesterolaemia [Unknown]
  - Low turnover osteopathy [Unknown]
  - Diabetes mellitus [Unknown]
  - Foot fracture [Unknown]
  - Pelvic fracture [Unknown]
  - Osteoarthritis [Unknown]

NARRATIVE: CASE EVENT DATE: 20020905
